FAERS Safety Report 6411849-8 (Version None)
Quarter: 2009Q4

REPORT INFORMATION
  Report Type: 
  Country: None (occurrence: None)
  Receive Date: 20091020
  Receipt Date: 20030728
  Transmission Date: 20100525
  Serious: Yes (Other)
  Sender: FDA-Public Use
  Company Number: 2009010732

PATIENT
  Age: 52 Year
  Sex: Female
  Weight: 56.6996 kg

DRUGS (4)
  1. ACTIQ [Suspect]
     Indication: FIBROMYALGIA
     Dosage: 3200 MCG (800 MC, 4 IN 1 D), BUCCAL
     Route: 002
     Dates: start: 20030301
  2. ACTIQ [Suspect]
  3. OXYCONTIN           (OXYCONTINE HYDROCHLORIDE) [Concomitant]
  4. ROXICODONE [Concomitant]

REACTIONS (2)
  - LUNG NEOPLASM MALIGNANT [None]
  - PRODUCT TASTE ABNORMAL [None]
